FAERS Safety Report 7908122-5 (Version None)
Quarter: 2011Q4

REPORT INFORMATION
  Report Type: 
  Country: None (occurrence: None)
  Receive Date: 20111111
  Receipt Date: 20111102
  Transmission Date: 20120403
  Serious: No
  Sender: FDA-Public Use
  Company Number: US-BIOGENIDEC-2010BI033084

PATIENT
  Sex: Female

DRUGS (1)
  1. TYSABRI [Suspect]
     Indication: MULTIPLE SCLEROSIS
     Route: 042
     Dates: start: 20070103

REACTIONS (7)
  - EAR INFECTION [None]
  - ASTHENIA [None]
  - BALANCE DISORDER [None]
  - VERTIGO [None]
  - FATIGUE [None]
  - MULTIPLE ALLERGIES [None]
  - HERPES ZOSTER [None]
